FAERS Safety Report 11213668 (Version 1)
Quarter: 2015Q2

REPORT INFORMATION
  Report Type: Spontaneous
  Country: RU (occurrence: RU)
  Receive Date: 20150623
  Receipt Date: 20150623
  Transmission Date: 20150821
  Serious: Yes (Death)
  Sender: FDA-Public Use
  Company Number: RU-MYLANLABS-2015M1020757

PATIENT

DRUGS (3)
  1. THIAMAZOLE [Concomitant]
     Active Substance: METHIMAZOLE
     Dosage: 30 MG/DAY
     Route: 065
  2. PROPRANOLOL [Suspect]
     Active Substance: PROPRANOLOL\PROPRANOLOL HYDROCHLORIDE
     Indication: TACHYCARDIA
     Dosage: 40MG
     Route: 065
  3. THIAMAZOLE [Concomitant]
     Active Substance: METHIMAZOLE
     Dosage: 50 MG/DAY
     Route: 065

REACTIONS (1)
  - Cardiogenic shock [Fatal]
